FAERS Safety Report 9462109 (Version 1)
Quarter: 2013Q3

REPORT INFORMATION
  Report Type: Spontaneous
  Country: CA (occurrence: CA)
  Receive Date: 20130816
  Receipt Date: 20130816
  Transmission Date: 20140515
  Serious: Yes (Other)
  Sender: FDA-Public Use
  Company Number: CA-SHIRE-ALL1-2013-04926

PATIENT
  Age: 49 Year
  Sex: Female
  Weight: 95.24 kg

DRUGS (7)
  1. VYVANSE [Suspect]
     Indication: ATTENTION DEFICIT/HYPERACTIVITY DISORDER
     Dosage: 30 MG, UNKNOWN
     Route: 048
     Dates: start: 20130627, end: 2013
  2. VYVANSE [Suspect]
     Dosage: 30 MG, 1X/DAY:QD
     Route: 048
     Dates: start: 2013
  3. TORADOL [Concomitant]
     Indication: MIGRAINE
     Dosage: UNK, UNKNOWN
     Route: 030
  4. CYMBALTA [Concomitant]
     Indication: DEPRESSION
     Dosage: 60 MG, UNKNOWN
     Route: 065
     Dates: start: 2011
  5. CLOMIPRAMINE [Concomitant]
     Indication: DEVELOPMENTAL COORDINATION DISORDER
     Dosage: 150 MG, UNKNOWN
     Route: 065
     Dates: start: 2009
  6. SEROQUEL [Concomitant]
     Indication: DEPRESSION
     Dosage: 75 MG, UNKNOWN
     Route: 065
     Dates: start: 2012
  7. CONCERTA [Concomitant]
     Indication: ATTENTION DEFICIT/HYPERACTIVITY DISORDER
     Dosage: 112 MG, UNKNOWN
     Route: 065
     Dates: start: 2012, end: 20130619

REACTIONS (5)
  - Illusion [Recovered/Resolved]
  - Psychotic disorder [Unknown]
  - Hallucination, visual [Recovered/Resolved]
  - Abnormal behaviour [Unknown]
  - Migraine [Unknown]
